APPROVED DRUG PRODUCT: OLMESARTAN MEDOXOMIL
Active Ingredient: OLMESARTAN MEDOXOMIL
Strength: 20MG
Dosage Form/Route: TABLET;ORAL
Application: A090237 | Product #002
Applicant: SANDOZ INC
Approved: Apr 13, 2020 | RLD: No | RS: No | Type: DISCN